FAERS Safety Report 9921118 (Version 1)
Quarter: 2014Q1

REPORT INFORMATION
  Report Type: Report from Study
  Country: US (occurrence: US)
  Receive Date: 20140225
  Receipt Date: 20140225
  Transmission Date: 20141002
  Serious: Yes (Other)
  Sender: FDA-Public Use
  Company Number: US-ROCHE-1332954

PATIENT
  Sex: Female

DRUGS (22)
  1. LUCENTIS [Suspect]
     Indication: DIABETIC RETINOPATHY
     Route: 050
  2. LUCENTIS [Suspect]
     Indication: DIABETIC RETINAL OEDEMA
  3. LUCENTIS [Suspect]
     Indication: AGE-RELATED MACULAR DEGENERATION
  4. AVASTIN [Suspect]
     Indication: PRODUCT USED FOR UNKNOWN INDICATION
     Route: 047
     Dates: end: 20100119
  5. WELCHOL [Concomitant]
  6. INSULIN [Concomitant]
  7. LASIX [Concomitant]
  8. GLUCOPHAGE [Concomitant]
     Route: 065
  9. LIPITOR [Concomitant]
  10. SYNTHROID [Concomitant]
  11. VALTREX [Concomitant]
  12. CELEBREX [Concomitant]
  13. ZANTAC [Concomitant]
  14. OCUFLOX [Concomitant]
  15. TOBRADEX [Concomitant]
  16. WELLBUTRIN [Concomitant]
  17. ATIVAN [Concomitant]
  18. MELATONIN [Concomitant]
  19. FENTANYL PATCH [Concomitant]
  20. ESTRACE [Concomitant]
  21. ASPIRIN [Concomitant]
  22. FEXOFENADINE [Concomitant]

REACTIONS (8)
  - Eye pruritus [Unknown]
  - Vision blurred [Unknown]
  - Visual acuity reduced [Unknown]
  - Visual impairment [Unknown]
  - Metamorphopsia [Unknown]
  - Oedema peripheral [Unknown]
  - Drug ineffective [Unknown]
  - Dry eye [Unknown]
